FAERS Safety Report 5596793-0 (Version None)
Quarter: 2008Q1

REPORT INFORMATION
  Report Type: 
  Country: None (occurrence: None)
  Receive Date: 20080118
  Receipt Date: 20080109
  Transmission Date: 20080703
  Serious: Yes (Other)
  Sender: FDA-Public Use
  Company Number: US-PFIZER INC-2008003203

PATIENT
  Sex: Female
  Weight: 65.8 kg

DRUGS (3)
  1. CHANTIX [Suspect]
     Indication: SMOKING CESSATION THERAPY
     Dates: start: 20071001, end: 20071217
  2. ZOLOFT [Concomitant]
  3. TRAZODONE HCL [Concomitant]

REACTIONS (11)
  - DIARRHOEA [None]
  - DISTURBANCE IN ATTENTION [None]
  - DYSGEUSIA [None]
  - EMOTIONAL DISTRESS [None]
  - FEELING ABNORMAL [None]
  - GINGIVAL PAIN [None]
  - MALAISE [None]
  - NAUSEA [None]
  - NERVOUSNESS [None]
  - ORAL PAIN [None]
  - THINKING ABNORMAL [None]
